FAERS Safety Report 8873135 (Version 1)
Quarter: 2012Q4

REPORT INFORMATION
  Report Type: 
  Country: US (occurrence: US)
  Receive Date: 20121029
  Receipt Date: 20121029
  Transmission Date: 20130627
  Serious: Yes (Hospitalization, Other)
  Sender: FDA-Public Use
  Company Number: US-B.I. PHARMACEUTICALS,INC./RIDGEFIELD-2012-BP-26485BP

PATIENT
  Sex: Male
  Weight: 89 kg

DRUGS (4)
  1. PRADAXA [Suspect]
     Indication: ATRIAL FIBRILLATION
     Dosage: 300 mg
     Route: 048
     Dates: start: 201104
  2. PRADAXA [Suspect]
     Dosage: 150 mg
     Route: 048
     Dates: start: 201105
  3. NITRATE [Concomitant]
     Indication: CARDIAC DISORDER
     Dosage: 30 mg
     Route: 048
     Dates: start: 2002
  4. MULTAQ [Concomitant]
     Indication: ATRIAL FIBRILLATION
     Dosage: 800 mg
     Route: 048
     Dates: start: 201104

REACTIONS (10)
  - Cardiac ablation [Recovered/Resolved]
  - Haemoglobin decreased [Unknown]
  - Dyspnoea [Recovered/Resolved]
  - Rectal haemorrhage [Recovered/Resolved]
  - Melaena [Unknown]
  - Faecaloma [Recovered/Resolved]
  - Feeling abnormal [Recovered/Resolved]
  - Chest pain [Recovered/Resolved]
  - Abdominal pain [Recovered/Resolved]
  - Contusion [Not Recovered/Not Resolved]
